FAERS Safety Report 6426997 (Version 7)
Quarter: 2014Q4

REPORT INFORMATION
  Report Type: Report from Study
  Country: IL (occurrence: IL)
  Receive Date: 20070925
  Receipt Date: 20141113
  Transmission Date: 20150529
  Serious: Yes (Hospitalization)
  Sender: FDA-Public Use
  Company Number: PHHO2007IL15386

PATIENT
  Age: 21 Year
  Sex: Male
  Weight: 54 kg

DRUGS (2)
  1. PEGASYS [Suspect]
     Active Substance: PEGINTERFERON ALFA-2A
     Indication: CHRONIC HEPATITIS B
     Dosage: 180 UG,
     Route: 058
     Dates: start: 20070426, end: 20070822
  2. LDT600 [Suspect]
     Active Substance: TELBIVUDINE
     Indication: CHRONIC HEPATITIS B
     Dosage: 600 MG,
     Route: 048
     Dates: start: 20070426, end: 20070822

REACTIONS (4)
  - Paraesthesia [Recovering/Resolving]
  - Peripheral sensory neuropathy [Recovering/Resolving]
  - Pain [Recovering/Resolving]
  - Sensory loss [Recovering/Resolving]

NARRATIVE: CASE EVENT DATE: 20070701
